FAERS Safety Report 7728889-9 (Version None)
Quarter: 2011Q3

REPORT INFORMATION
  Report Type: 
  Country: None (occurrence: None)
  Receive Date: 20110906
  Receipt Date: 20110829
  Transmission Date: 20111222
  Serious: Yes (Hospitalization)
  Sender: FDA-Public Use
  Company Number: PHHY2011TR76881

PATIENT
  Age: 76 Year
  Sex: Male

DRUGS (3)
  1. FOLIC ACID [Concomitant]
     Indication: THROMBOCYTOSIS
     Dosage: UNK UKN, UNK
  2. ACETYLSALICYLIC ACID SRT [Suspect]
     Indication: THROMBOCYTOSIS
  3. ENALAPRIL MALEATE [Concomitant]
     Indication: HYPERTENSION
     Dosage: UNK UKN, UNK

REACTIONS (4)
  - PEMPHIGOID [None]
  - BLISTER [None]
  - ORAL MUCOSA EROSION [None]
  - DERMATITIS BULLOUS [None]
